FAERS Safety Report 19936874 (Version 2)
Quarter: 2021Q4

REPORT INFORMATION
  Report Type: Spontaneous
  Country: IT (occurrence: IT)
  Receive Date: 20211009
  Receipt Date: 20211016
  Transmission Date: 20220303
  Serious: Yes (Death, Hospitalization, Other)
  Sender: FDA-Public Use
  Company Number: NVSC2021IT231423

PATIENT
  Age: 71 Year
  Sex: Male

DRUGS (3)
  1. BROLUCIZUMAB [Suspect]
     Active Substance: BROLUCIZUMAB
     Indication: Product used for unknown indication
     Dosage: 6 MG, QMO
     Route: 065
     Dates: start: 20210208
  2. BROLUCIZUMAB [Suspect]
     Active Substance: BROLUCIZUMAB
     Dosage: 6 MG, QMO
     Route: 065
     Dates: start: 20210310
  3. BROLUCIZUMAB [Suspect]
     Active Substance: BROLUCIZUMAB
     Dosage: 6 MG, QMO
     Route: 065
     Dates: start: 20210414

REACTIONS (9)
  - Septic shock [Fatal]
  - Intestinal fistula [Fatal]
  - Essential hypertension [Fatal]
  - Cerebrovascular disorder [Fatal]
  - Hemiplegia [Fatal]
  - Oesophagitis [Fatal]
  - Subacute endocarditis [Fatal]
  - Hydronephrosis [Unknown]
  - Peritoneal adhesions [Unknown]
